FAERS Safety Report 8620295-8 (Version None)
Quarter: 2012Q3

REPORT INFORMATION
  Report Type: 
  Country: None (occurrence: None)
  Receive Date: 20120824
  Receipt Date: 20120817
  Transmission Date: 20120928
  Serious: Yes (Other)
  Sender: FDA-Public Use
  Company Number: GB-B.I. PHARMACEUTICALS,INC./RIDGEFIELD-2012-UK-01096UK

PATIENT
  Age: 83 Year
  Sex: Male

DRUGS (6)
  1. PRADAXA [Suspect]
     Indication: CEREBROVASCULAR ACCIDENT PROPHYLAXIS
     Dosage: 220 MG
     Route: 048
  2. METFORMIN HCL [Concomitant]
  3. LISINOPRIL [Concomitant]
  4. RAMIPRIL [Concomitant]
  5. AMLODIPINE [Concomitant]
  6. DOXAZOSIN MESYLATE [Concomitant]

REACTIONS (3)
  - PAIN IN EXTREMITY [None]
  - CELLULITIS [None]
  - DEEP VEIN THROMBOSIS [None]
